FAERS Safety Report 9529522 (Version 1)
Quarter: 2013Q1

REPORT INFORMATION
  Report Type: Spontaneous
  Country: US (occurrence: None)
  Receive Date: 20130329
  Receipt Date: 20130329
  Transmission Date: 20140127
  Serious: Yes (Other)
  Sender: FDA-Public Use
  Company Number: 1000041655

PATIENT
  Sex: Male

DRUGS (3)
  1. LINZESS [Suspect]
     Dosage: 290 MCG (290 MCG, 1 IN 1 D),
  2. AMITIZA (LUBIPROSTONE) (LUBIPROSTONE) [Concomitant]
  3. MIRALAX (POLYETHYLENE GLYCOL) (POLYETHYLENE GLYCOL) [Concomitant]

REACTIONS (1)
  - Diarrhoea [None]
